FAERS Safety Report 10230791 (Version 1)
Quarter: 2014Q2

REPORT INFORMATION
  Report Type: Spontaneous
  Country: SA (occurrence: SA)
  Receive Date: 20140611
  Receipt Date: 20140611
  Transmission Date: 20141212
  Serious: Yes (Other)
  Sender: FDA-Public Use
  Company Number: SA-ELI_LILLY_AND_COMPANY-SA201406000216

PATIENT
  Sex: Male

DRUGS (6)
  1. FORTEO [Suspect]
     Indication: PRODUCT USED FOR UNKNOWN INDICATION
     Dosage: UNK, UNKNOWN
     Route: 058
     Dates: start: 201203, end: 201303
  2. FORTEO [Suspect]
     Dosage: UNK, UNKNOWN
     Route: 058
     Dates: end: 201405
  3. SYMBICORT [Concomitant]
     Dosage: UNK, UNKNOWN
     Route: 065
  4. HYDROCORTISONE [Concomitant]
     Dosage: UNK, UNKNOWN
     Route: 065
  5. PANTOPRAZOLE [Concomitant]
     Dosage: UNK, UNKNOWN
     Route: 065
  6. ELTROXIN [Concomitant]
     Dosage: 50 MG, UNKNOWN
     Route: 065

REACTIONS (1)
  - Renal disorder [Unknown]
